FAERS Safety Report 4779055-0 (Version None)
Quarter: 2005Q3

REPORT INFORMATION
  Report Type: 
  Country: None (occurrence: None)
  Receive Date: 20050914
  Receipt Date: 20050602
  Transmission Date: 20060218
  Serious: Yes (Other)
  Sender: FDA-Public Use
  Company Number: 406816

PATIENT
  Age: 70 Year
  Sex: Female
  Weight: 63.5 kg

DRUGS (6)
  1. BONIVA [Suspect]
     Indication: OSTEOPOROSIS
     Dosage: ORAL
     Route: 048
     Dates: start: 20050601
  2. SYNTHROID [Concomitant]
  3. LOPID [Concomitant]
  4. B12 (CYANOCOBALAMIN) [Concomitant]
  5. MICARDIS [Concomitant]
  6. FORTEO [Concomitant]

REACTIONS (2)
  - ASTHENIA [None]
  - HYPOTENSION [None]
